FAERS Safety Report 20237595 (Version 4)
Quarter: 2022Q1

REPORT INFORMATION
  Report Type: Other
  Country: DE (occurrence: None)
  Receive Date: 20211228
  Receipt Date: 20220222
  Transmission Date: 20220424
  Serious: No
  Sender: FDA-Public Use
  Company Number: DE-ROCHE-2776250

PATIENT
  Age: 49 Year
  Sex: Female

DRUGS (6)
  1. OCREVUS [Suspect]
     Active Substance: OCRELIZUMAB
     Indication: Multiple sclerosis
     Route: 042
     Dates: start: 20210218
  2. OCREVUS [Suspect]
     Active Substance: OCRELIZUMAB
     Route: 042
     Dates: start: 20210304
  3. OCREVUS [Suspect]
     Active Substance: OCRELIZUMAB
     Route: 042
  4. COVID-19 VACCINE NOS [Suspect]
     Active Substance: COVID-19 VACCINE NOS
     Indication: Multiple sclerosis
     Route: 065
  5. CASIRIVIMAB\IMDEVIMAB [Suspect]
     Active Substance: CASIRIVIMAB\IMDEVIMAB
     Indication: Prophylaxis
     Route: 065
     Dates: start: 20211222
  6. ATACAND [Concomitant]
     Active Substance: CANDESARTAN CILEXETIL

REACTIONS (16)
  - Flushing [Recovered/Resolved]
  - Body temperature increased [Recovered/Resolved]
  - Head discomfort [Recovered/Resolved]
  - Fatigue [Recovered/Resolved]
  - Neuralgia [Recovering/Resolving]
  - Alopecia [Recovered/Resolved]
  - Onychomadesis [Recovered/Resolved]
  - Paraesthesia [Recovered/Resolved]
  - Skin disorder [Recovered/Resolved]
  - Muscular weakness [Not Recovered/Not Resolved]
  - Asthenia [Not Recovered/Not Resolved]
  - Dysphonia [Not Recovered/Not Resolved]
  - Peripheral coldness [Recovered/Resolved]
  - Muscle spasticity [Recovered/Resolved]
  - SARS-CoV-2 antibody test positive [Not Recovered/Not Resolved]
  - Drug ineffective [Unknown]

NARRATIVE: CASE EVENT DATE: 20210218
